FAERS Safety Report 10248456 (Version 1)
Quarter: 2014Q2

REPORT INFORMATION
  Report Type: Spontaneous
  Country: US (occurrence: US)
  Receive Date: 20140620
  Receipt Date: 20140620
  Transmission Date: 20141212
  Serious: No
  Sender: FDA-Public Use
  Company Number: US-BIOGENIDEC-2014BI057460

PATIENT
  Age: 54 Year
  Sex: Female

DRUGS (1)
  1. TECFIDERA [Suspect]
     Indication: MULTIPLE SCLEROSIS

REACTIONS (4)
  - White blood cells urine [Not Recovered/Not Resolved]
  - Bacterial infection [Recovered/Resolved]
  - Blood chloride increased [Unknown]
  - White blood cell count decreased [Not Recovered/Not Resolved]
